FAERS Safety Report 12503155 (Version 1)
Quarter: 2016Q2

REPORT INFORMATION
  Report Type: Spontaneous
  Country: DE (occurrence: DE)
  Receive Date: 20160628
  Receipt Date: 20160628
  Transmission Date: 20160815
  Serious: Yes (Hospitalization, Other)
  Sender: FDA-Public Use
  Company Number: DE-009507513-1605DEU004606

PATIENT
  Age: 80 Year
  Sex: Male

DRUGS (9)
  1. PANTOZOL [Concomitant]
     Active Substance: PANTOPRAZOLE SODIUM
  2. SIMVASTATIN. [Concomitant]
     Active Substance: SIMVASTATIN
     Indication: HYPERKERATOSIS LENTICULARIS PERSTANS
  3. ASS 100 [Concomitant]
     Active Substance: ASPIRIN
     Indication: PERIPHERAL ARTERIAL OCCLUSIVE DISEASE
  4. AMLODIPINE [Concomitant]
     Active Substance: AMLODIPINE BESYLATE
     Indication: RENAL FAILURE
  5. LEVETIRACETAM. [Concomitant]
     Active Substance: LEVETIRACETAM
     Indication: EPILEPSY
  6. INSULIN [Concomitant]
     Active Substance: INSULIN NOS
     Indication: TYPE 2 DIABETES MELLITUS
  7. KEYTRUDA [Suspect]
     Active Substance: PEMBROLIZUMAB
     Dosage: UNK UNK, Q3W
     Route: 042
     Dates: start: 201510, end: 20160427
  8. METOPROLOL. [Concomitant]
     Active Substance: METOPROLOL
     Indication: HYPERTENSION
  9. TOREM [Concomitant]
     Active Substance: TORSEMIDE

REACTIONS (3)
  - Pruritus generalised [Recovered/Resolved]
  - Pemphigoid [Unknown]
  - Blister [Recovered/Resolved]

NARRATIVE: CASE EVENT DATE: 20160428
